FAERS Safety Report 20615991 (Version 1)
Quarter: 2022Q1

REPORT INFORMATION
  Report Type: Spontaneous
  Country: US (occurrence: None)
  Receive Date: 20220318
  Receipt Date: 20220318
  Transmission Date: 20220424
  Serious: Yes (Hospitalization)
  Sender: FDA-Public Use
  Company Number: None

PATIENT
  Age: 75 Year
  Sex: Male

DRUGS (2)
  1. FORTEO [Suspect]
     Active Substance: TERIPARATIDE
     Indication: Product used for unknown indication
     Dosage: 600MCG/2.4ML?
     Route: 058
     Dates: start: 20220315
  2. FORTEO [Suspect]
     Active Substance: TERIPARATIDE
     Dosage: OTHER STRENGTH : 600MCG/2.4ML;?FREQUENCY : DAILY;?
     Route: 058
     Dates: start: 20220315

REACTIONS (4)
  - Chest pain [None]
  - Dyspnoea [None]
  - Troponin increased [None]
  - Therapy interrupted [None]

NARRATIVE: CASE EVENT DATE: 20220317
